FAERS Safety Report 6219183-6 (Version None)
Quarter: 2009Q2

REPORT INFORMATION
  Report Type: 
  Country: None (occurrence: None)
  Receive Date: 20090605
  Receipt Date: 20090605
  Transmission Date: 20091009
  Serious: Yes (Other)
  Sender: FDA-Public Use
  Company Number: None

PATIENT
  Sex: Male
  Weight: 78.0187 kg

DRUGS (1)
  1. SERTRALINE HCL [Suspect]
     Dosage: 1 TAB ONCE DAILY PO
     Route: 048
     Dates: start: 20090219, end: 20090525

REACTIONS (5)
  - CHEST PAIN [None]
  - NAUSEA [None]
  - PAIN IN EXTREMITY [None]
  - PAIN IN JAW [None]
  - PRODUCT SUBSTITUTION ISSUE [None]
